FAERS Safety Report 10150899 (Version 1)
Quarter: 2014Q2

REPORT INFORMATION
  Report Type: Spontaneous
  Country: US (occurrence: US)
  Receive Date: 20140502
  Receipt Date: 20140502
  Transmission Date: 20141212
  Serious: No
  Sender: FDA-Public Use
  Company Number: US-PFIZER INC-2014118818

PATIENT
  Sex: Female

DRUGS (3)
  1. METFORMIN HCL [Suspect]
     Dosage: UNK
  2. GLIBENCLAMIDE [Suspect]
     Dosage: UNK
  3. VICTOZA [Suspect]
     Dosage: UNK

REACTIONS (1)
  - Nausea [Unknown]
